FAERS Safety Report 4713463-9 (Version None)
Quarter: 2005Q3

REPORT INFORMATION
  Report Type: 
  Country: None (occurrence: None)
  Receive Date: 20050713
  Receipt Date: 20050706
  Transmission Date: 20060218
  Serious: Yes (Other)
  Sender: FDA-Public Use
  Company Number: 2005UW10081

PATIENT

DRUGS (2)
  1. SEROQUEL [Suspect]
     Route: 048
  2. TRILEPTAL [Concomitant]

REACTIONS (1)
  - METABOLIC ACIDOSIS [None]
